FAERS Safety Report 7472410-X (Version None)
Quarter: 2011Q2

REPORT INFORMATION
  Report Type: 
  Country: None (occurrence: None)
  Receive Date: 20110511
  Receipt Date: 20110426
  Transmission Date: 20111010
  Serious: No
  Sender: FDA-Public Use
  Company Number: US-B.I. PHARMACEUTICALS,INC./RIDGEFIELD-2011-BP-11841BP

PATIENT
  Age: 71 Year
  Sex: Male

DRUGS (17)
  1. MULTAQ [Suspect]
     Dosage: 800 MG
  2. VITAMIN B6 [Concomitant]
  3. AMBIEN [Concomitant]
  4. VITAMIN D [Concomitant]
  5. TOPROL-XL [Concomitant]
     Dosage: 25 MG
  6. NEXIUM [Concomitant]
     Dosage: 40 MG
  7. THYROID TAB [Concomitant]
  8. VITAMIN B-12 [Concomitant]
  9. FOLIC ACID [Concomitant]
  10. ASPIRIN [Concomitant]
     Dosage: 325 MG
  11. NORCO [Concomitant]
  12. PRADAXA [Suspect]
     Indication: ATRIAL FLUTTER
     Dosage: 300 MG
     Route: 048
     Dates: start: 20110412, end: 20110422
  13. MAGNESIUM [Concomitant]
  14. KLOR-CON [Concomitant]
     Dosage: 8 MEQ
  15. PRISTIQ [Concomitant]
     Dosage: 100 MG
  16. CALCIUM PHOSPHATE [Concomitant]
  17. LASIX [Concomitant]
     Dosage: 20 MG

REACTIONS (3)
  - RENAL IMPAIRMENT [None]
  - INTERNATIONAL NORMALISED RATIO ABNORMAL [None]
  - BLOOD CREATININE ABNORMAL [None]
